FAERS Safety Report 14915320 (Version 1)
Quarter: 2018Q2

REPORT INFORMATION
  Report Type: Spontaneous
  Country: US (occurrence: US)
  Receive Date: 20180501
  Receipt Date: 20180501
  Transmission Date: 20180711
  Serious: No
  Sender: FDA-Public Use
  Company Number: None

PATIENT
  Age: 83 Year
  Sex: Female
  Weight: 56.25 kg

DRUGS (10)
  1. ZOCOR [Concomitant]
     Active Substance: SIMVASTATIN
  2. B [Concomitant]
  3. C [Concomitant]
  4. DONNATOL [Concomitant]
  5. MULT [Concomitant]
  6. E [Concomitant]
  7. D [Concomitant]
  8. COENZYME Q10 [Concomitant]
     Active Substance: UBIDECARENONE
  9. CRANBERRY. [Concomitant]
     Active Substance: CRANBERRY
  10. TENORMIN [Suspect]
     Active Substance: ATENOLOL
     Indication: HYPERTENSION
     Dosage: ?          QUANTITY:1 PILL;?
     Route: 048

REACTIONS (1)
  - Hypertension [None]
